FAERS Safety Report 8982765 (Version 1)
Quarter: 2012Q4

REPORT INFORMATION
  Report Type: Report from Study
  Country: FI (occurrence: JP)
  Receive Date: 20121221
  Receipt Date: 20121221
  Transmission Date: 20130627
  Serious: Yes (Other)
  Sender: FDA-Public Use
  Company Number: JP-009507513-1205USA04876

PATIENT
  Age: 74 Year
  Sex: Male

DRUGS (1)
  1. TAFLUPROST [Suspect]
     Indication: OPEN ANGLE GLAUCOMA
     Dosage: 15ug/ml
     Route: 047
     Dates: start: 20091117, end: 20110414

REACTIONS (1)
  - Cerebral infarction [Unknown]
